FAERS Safety Report 19958636 (Version 1)
Quarter: 2021Q4

REPORT INFORMATION
  Report Type: Spontaneous
  Country: FR (occurrence: FR)
  Receive Date: 20211015
  Receipt Date: 20211015
  Transmission Date: 20220304
  Serious: Yes (Other)
  Sender: FDA-Public Use
  Company Number: None

PATIENT
  Age: 28 Year
  Sex: Male

DRUGS (1)
  1. DOXORUBICIN [Suspect]
     Active Substance: DOXORUBICIN
     Indication: Hodgkin^s disease
     Dosage: 270 MG/M2
     Route: 042
     Dates: start: 202101

REACTIONS (1)
  - Left ventricular dysfunction [Recovering/Resolving]

NARRATIVE: CASE EVENT DATE: 20210901
